FAERS Safety Report 8360753-7 (Version None)
Quarter: 2012Q2

REPORT INFORMATION
  Report Type: 
  Country: None (occurrence: None)
  Receive Date: 20120515
  Receipt Date: 20120507
  Transmission Date: 20120825
  Serious: No
  Sender: FDA-Public Use
  Company Number: US-ASTRAZENECA-2012SE29726

PATIENT
  Age: 25 Year
  Sex: Female

DRUGS (4)
  1. KLONAPEN [Concomitant]
  2. LAMICTAL [Concomitant]
  3. SEROQUEL XR [Suspect]
     Route: 048
  4. CYMBALTA [Concomitant]

REACTIONS (2)
  - INTENTIONAL DRUG MISUSE [None]
  - CONDITION AGGRAVATED [None]
